FAERS Safety Report 22096945 (Version 2)
Quarter: 2023Q1

REPORT INFORMATION
  Report Type: Spontaneous
  Country: CA (occurrence: CA)
  Receive Date: 20230315
  Receipt Date: 20230323
  Transmission Date: 20230417
  Serious: Yes (Other)
  Sender: FDA-Public Use
  Company Number: CA-PFIZER INC-202300107540

PATIENT
  Age: 62 Year
  Sex: Male

DRUGS (1)
  1. SULFASALAZINE [Suspect]
     Active Substance: SULFASALAZINE
     Dosage: UNK
     Dates: start: 202012, end: 202101

REACTIONS (3)
  - Psoriatic arthropathy [Unknown]
  - Nausea [Unknown]
  - Gastrooesophageal reflux disease [Unknown]
